FAERS Safety Report 9749344 (Version 2)
Quarter: 2013Q4

REPORT INFORMATION
  Report Type: Report from Study
  Country: CO (occurrence: CO)
  Receive Date: 20131212
  Receipt Date: 20131212
  Transmission Date: 20140711
  Serious: Yes (Other)
  Sender: FDA-Public Use
  Company Number: CO-ROCHE-1286789

PATIENT
  Sex: Female
  Weight: 80 kg

DRUGS (4)
  1. RANIBIZUMAB [Suspect]
     Indication: MACULAR DEGENERATION
     Route: 050
     Dates: start: 2011
  2. LOSARTAN [Concomitant]
  3. INSULIN [Concomitant]
  4. METFORMIN [Concomitant]

REACTIONS (4)
  - Accident [Recovering/Resolving]
  - Joint injury [Recovering/Resolving]
  - Meniscus injury [Recovering/Resolving]
  - Lower limb fracture [Unknown]
